FAERS Safety Report 9851969 (Version 1)
Quarter: 2013Q4

REPORT INFORMATION
  Report Type: Spontaneous
  Country: US (occurrence: None)
  Receive Date: 20131226
  Receipt Date: 20131226
  Transmission Date: 20140711
  Serious: No
  Sender: FDA-Public Use
  Company Number: PHEH2013US014726

PATIENT
  Age: 46 Year
  Sex: Female

DRUGS (10)
  1. GILENYA (FINGOLIMOD) CAPSULE, 0.5MG [Suspect]
     Route: 048
  2. EFFEXOR (VENLAFAXINE HYDROCHLORIDE) UNKNOWN [Suspect]
     Dates: start: 20130710
  3. BACLOFEN (BACLOFEN) [Concomitant]
  4. CLONAZEPAM (CLONAZEPAM) [Concomitant]
  5. LAMOTRIGINE (LAMOTRIGINE) [Concomitant]
  6. MULTI-VIT (VITAMINS NOS) [Concomitant]
  7. VITAMIN B12 (CYANOCOBALAMIN) [Concomitant]
  8. VITAMIN D (ERGOCALCIFEROL) [Concomitant]
  9. VITAMIN E (TOCOPHEROL) [Concomitant]
  10. FISH OIL (FISH OIL) [Concomitant]

REACTIONS (2)
  - Nausea [None]
  - Malaise [None]
